FAERS Safety Report 17119136 (Version 1)
Quarter: 2019Q4

REPORT INFORMATION
  Report Type: Spontaneous
  Country: US (occurrence: US)
  Receive Date: 20191206
  Receipt Date: 20191206
  Transmission Date: 20200122
  Serious: No
  Sender: FDA-Public Use
  Company Number: US-UCBSA-2017033664

PATIENT
  Age: 41 Year
  Sex: Female

DRUGS (5)
  1. IMMUNOGLOBULIN [Concomitant]
     Indication: IMMUNE THROMBOCYTOPENIC PURPURA
     Dosage: UNKNOWN DOSE
     Route: 042
  2. LEVETIRACETAM. [Suspect]
     Active Substance: LEVETIRACETAM
     Indication: IMMUNE THROMBOCYTOPENIC PURPURA
     Dosage: UNKNOWN DOSE
  3. DEXAMETHASONE. [Concomitant]
     Active Substance: DEXAMETHASONE
     Indication: IMMUNE THROMBOCYTOPENIC PURPURA
     Dosage: UNKNOWN DOSE
  4. WARFARIN [Concomitant]
     Active Substance: WARFARIN
     Indication: ANTIPHOSPHOLIPID ANTIBODIES
     Dosage: UNKNOWN DOSE
  5. LEVETIRACETAM. [Suspect]
     Active Substance: LEVETIRACETAM
     Indication: OFF LABEL USE

REACTIONS (1)
  - No adverse event [Unknown]
